FAERS Safety Report 21254247 (Version 3)
Quarter: 2022Q4

REPORT INFORMATION
  Report Type: Report from Study
  Country: US (occurrence: US)
  Receive Date: 20220825
  Receipt Date: 20221026
  Transmission Date: 20230113
  Serious: Yes (Other)
  Sender: FDA-Public Use
  Company Number: NVSC2022US189949

PATIENT
  Sex: Male

DRUGS (1)
  1. ENTRESTO [Suspect]
     Active Substance: SACUBITRIL\VALSARTAN
     Indication: Product used for unknown indication
     Dosage: UNK UNK, BID
     Route: 048

REACTIONS (4)
  - Chronic kidney disease [Unknown]
  - Urinary tract infection [Not Recovered/Not Resolved]
  - Pyrexia [Recovered/Resolved]
  - Fatigue [Recovering/Resolving]
